FAERS Safety Report 8338064-5 (Version None)
Quarter: 2012Q2

REPORT INFORMATION
  Report Type: 
  Country: None (occurrence: None)
  Receive Date: 20120504
  Receipt Date: 20120424
  Transmission Date: 20120825
  Serious: Yes (Hospitalization)
  Sender: FDA-Public Use
  Company Number: US-JNJFOC-20120413754

PATIENT
  Age: 28 Year
  Sex: Female

DRUGS (40)
  1. CISPLATIN [Suspect]
     Indication: OVARIAN CANCER
     Route: 042
  2. PEGFILGRASTIM [Concomitant]
     Route: 065
  3. VINBLASTINE SULFATE [Suspect]
     Route: 042
  4. VINBLASTINE SULFATE [Suspect]
     Route: 042
  5. CISPLATIN [Suspect]
     Route: 042
  6. ETOPOSIDE [Suspect]
     Route: 042
  7. VINBLASTINE SULFATE [Suspect]
     Route: 042
  8. CISPLATIN [Suspect]
     Route: 042
  9. CYCLOPHOSPHAMIDE [Suspect]
     Indication: OVARIAN CANCER
     Route: 042
  10. CYCLOPHOSPHAMIDE [Suspect]
     Route: 042
  11. BLEOMYCIN SULFATE [Suspect]
     Route: 042
  12. ETOPOSIDE [Suspect]
     Indication: OVARIAN CANCER
     Route: 042
  13. ETOPOSIDE [Suspect]
     Route: 042
  14. DOXORUBICIN HCL [Suspect]
     Indication: OVARIAN CANCER
     Dosage: CYCLE 5
     Route: 042
  15. DOXORUBICIN HCL [Suspect]
     Dosage: CYCLE 3
     Route: 042
  16. VINBLASTINE [Suspect]
     Indication: OVARIAN CANCER
     Route: 042
  17. VINBLASTINE SULFATE [Suspect]
     Route: 042
  18. BLEOMYCIN SULFATE [Suspect]
     Route: 042
  19. PEGFILGRASTIM [Concomitant]
     Route: 065
  20. DOXORUBICIN HCL [Suspect]
     Dosage: CYCLE 6
     Route: 042
  21. CISPLATIN [Suspect]
     Route: 042
  22. ETOPOSIDE [Suspect]
     Route: 042
  23. ETOPOSIDE [Suspect]
     Route: 042
  24. CISPLATIN [Suspect]
     Route: 042
  25. CISPLATIN [Suspect]
     Route: 042
  26. CYCLOPHOSPHAMIDE [Suspect]
     Route: 042
  27. ETOPOSIDE [Suspect]
     Route: 042
  28. PEGFILGRASTIM [Concomitant]
     Route: 065
  29. DOXORUBICIN HCL [Suspect]
     Dosage: CYCLE 1
     Route: 042
  30. VINBLASTINE SULFATE [Suspect]
     Route: 042
  31. CYCLOPHOSPHAMIDE [Suspect]
     Route: 042
  32. CYCLOPHOSPHAMIDE [Suspect]
     Route: 042
  33. PEGFILGRASTIM [Concomitant]
     Indication: PROPHYLAXIS
     Route: 065
  34. PEGFILGRASTIM [Concomitant]
     Route: 065
  35. DOXORUBICIN HCL [Suspect]
     Dosage: CYCLE 2
     Route: 042
  36. DOXORUBICIN HCL [Suspect]
     Dosage: CYCLE 4
     Route: 042
  37. CYCLOPHOSPHAMIDE [Suspect]
     Route: 042
  38. BLEOMYCIN SULFATE [Suspect]
     Indication: OVARIAN CANCER
     Route: 042
  39. BLEOMYCIN SULFATE [Suspect]
     Route: 042
  40. PEGFILGRASTIM [Concomitant]
     Route: 065

REACTIONS (9)
  - CARBON MONOXIDE DIFFUSING CAPACITY DECREASED [None]
  - FEBRILE NEUTROPENIA [None]
  - PANCYTOPENIA [None]
  - NEUROPATHY PERIPHERAL [None]
  - NAUSEA [None]
  - STREPTOCOCCAL BACTERAEMIA [None]
  - BACTERAEMIA [None]
  - RENAL FAILURE ACUTE [None]
  - VOMITING [None]
